FAERS Safety Report 5109233-2 (Version None)
Quarter: 2006Q3

REPORT INFORMATION
  Report Type: 
  Country: None (occurrence: None)
  Receive Date: 20060920
  Receipt Date: 20060912
  Transmission Date: 20061208
  Serious: Yes (Hospitalization)
  Sender: FDA-Public Use
  Company Number: 2006UW18172

PATIENT
  Age: 701 Month
  Sex: Female

DRUGS (8)
  1. ARIMIDEX [Suspect]
     Indication: BREAST CANCER
     Route: 048
     Dates: start: 20051101, end: 20051101
  2. ARIMIDEX [Suspect]
     Route: 048
     Dates: start: 20060101
  3. VASOTEC [Concomitant]
     Indication: HYPERTENSION
     Dates: end: 20051101
  4. VASOTEC [Concomitant]
     Dates: end: 20060101
  5. NORVASC [Concomitant]
     Route: 048
     Dates: start: 20060101
  6. VITAMIN B COMPLEX CAP [Concomitant]
     Dosage: 1 TABLET
     Route: 048
  7. FLAXSEED OIL [Concomitant]
  8. MULTI-VITAMIN [Concomitant]
     Dosage: 1 TABLET
     Route: 048

REACTIONS (3)
  - BLOOD POTASSIUM INCREASED [None]
  - HUNGER [None]
  - NAUSEA [None]
